FAERS Safety Report 13404555 (Version 1)
Quarter: 2017Q2

REPORT INFORMATION
  Report Type: Spontaneous
  Country: US (occurrence: US)
  Receive Date: 20170405
  Receipt Date: 20170405
  Transmission Date: 20170830
  Serious: No
  Sender: FDA-Public Use
  Company Number: US-PERRIGO-16US017794

PATIENT
  Age: 69 Year
  Sex: Male
  Weight: 81.63 kg

DRUGS (2)
  1. ACETAMINOPHEN. [Suspect]
     Active Substance: ACETAMINOPHEN
     Indication: ARTHRALGIA
     Dosage: 1300 MG, SINGLE
     Route: 048
     Dates: start: 201605, end: 201605
  2. ACETAMINOPHEN. [Suspect]
     Active Substance: ACETAMINOPHEN
     Dosage: 2600 MG, UNKNOWN
     Route: 048
     Dates: start: 201605, end: 20160704

REACTIONS (2)
  - Incorrect dose administered [Recovered/Resolved]
  - Drug ineffective [Unknown]

NARRATIVE: CASE EVENT DATE: 201605
